FAERS Safety Report 5657818-7 (Version None)
Quarter: 2008Q1

REPORT INFORMATION
  Report Type: 
  Country: None (occurrence: None)
  Receive Date: 20080310
  Receipt Date: 20071015
  Transmission Date: 20080703
  Serious: No
  Sender: FDA-Public Use
  Company Number: US-ASTRAZENECA-2007UW23771

PATIENT
  Age: 34 Year
  Sex: Male
  Weight: 90.9 kg

DRUGS (3)
  1. LISINOPRIL [Suspect]
     Indication: HYPERTENSION
     Route: 048
     Dates: start: 20010101
  2. CLONIDINE [Suspect]
     Indication: HYPERTENSION
     Route: 048
     Dates: start: 20010101, end: 20071001
  3. LEXAPRO [Concomitant]

REACTIONS (3)
  - NAUSEA [None]
  - THROAT IRRITATION [None]
  - VOMITING [None]
